FAERS Safety Report 9909208 (Version 1)
Quarter: 2014Q1

REPORT INFORMATION
  Report Type: Spontaneous
  Country: DE (occurrence: DE)
  Receive Date: 20140219
  Receipt Date: 20140219
  Transmission Date: 20141002
  Serious: Yes (Hospitalization)
  Sender: FDA-Public Use
  Company Number: DE-TEVA-461430GER

PATIENT
  Sex: Male
  Weight: 110 kg

DRUGS (6)
  1. SIMVASTATIN [Suspect]
     Indication: LOW DENSITY LIPOPROTEIN INCREASED
     Dosage: 40 MILLIGRAM DAILY;
     Route: 048
     Dates: start: 2006
  2. EZETROL [Suspect]
     Indication: LOW DENSITY LIPOPROTEIN INCREASED
     Dosage: 10 MILLIGRAM DAILY;
     Route: 048
     Dates: start: 200504, end: 200604
  3. EZETROL [Suspect]
     Indication: LOW DENSITY LIPOPROTEIN INCREASED
     Dosage: 10 MILLIGRAM DAILY;
     Route: 048
     Dates: start: 200607, end: 200611
  4. EZETROL [Suspect]
     Indication: LOW DENSITY LIPOPROTEIN INCREASED
     Dosage: 10 MILLIGRAM DAILY;
     Route: 048
     Dates: start: 200709, end: 201104
  5. SORTIS [Suspect]
     Indication: LOW DENSITY LIPOPROTEIN INCREASED
     Dosage: 20 MILLIGRAM DAILY;
     Route: 048
     Dates: start: 2006
  6. NIASPAN [Suspect]
     Indication: LOW DENSITY LIPOPROTEIN INCREASED
     Dosage: 375 MILLIGRAM DAILY;
     Route: 048
     Dates: start: 200611, end: 200704

REACTIONS (5)
  - Myopathy [Recovered/Resolved]
  - Restlessness [Recovered/Resolved]
  - Hot flush [Recovered/Resolved]
  - Skin burning sensation [Recovered/Resolved]
  - Flushing [Recovered/Resolved]
